FAERS Safety Report 15610303 (Version 2)
Quarter: 2018Q4

REPORT INFORMATION
  Report Type: Spontaneous
  Country: US (occurrence: US)
  Receive Date: 20181113
  Receipt Date: 20181119
  Transmission Date: 20190205
  Serious: No
  Sender: FDA-Public Use
  Company Number: US-AMGEN INC.-USASP2018159430

PATIENT
  Age: 52 Year
  Sex: Female

DRUGS (2)
  1. AIMOVIG [Suspect]
     Active Substance: ERENUMAB-AOOE
     Indication: MIGRAINE
     Dosage: 70 MG, QMO
     Route: 065
     Dates: start: 2018
  2. ASPIRIN. [Concomitant]
     Active Substance: ASPIRIN
     Dosage: UNK
     Route: 065

REACTIONS (7)
  - Diarrhoea [Unknown]
  - Injection site haemorrhage [Unknown]
  - Accidental exposure to product [Unknown]
  - Underdose [Unknown]
  - Drug effect incomplete [Unknown]
  - Migraine [Unknown]
  - Muscle spasms [Recovered/Resolved]

NARRATIVE: CASE EVENT DATE: 2018
